FAERS Safety Report 4432781-5 (Version None)
Quarter: 2004Q3

REPORT INFORMATION
  Report Type: 
  Country: None (occurrence: None)
  Receive Date: 20040823
  Receipt Date: 20040809
  Transmission Date: 20050211
  Serious: Yes (Other)
  Sender: FDA-Public Use
  Company Number: 2004055464

PATIENT
  Age: 53 Year
  Sex: Male

DRUGS (4)
  1. PHENYTOIN [Suspect]
     Indication: EPILEPSY
  2. LEUCOVORIN CALCIUM [Suspect]
     Indication: CHEMOTHERAPY
     Dosage: ORAL
     Route: 048
  3. TEGAFUR [Concomitant]
  4. URAMUSTINE [Concomitant]

REACTIONS (5)
  - DRUG INEFFECTIVE [None]
  - DRUG INTERACTION [None]
  - DRUG LEVEL DECREASED [None]
  - METASTASES TO CENTRAL NERVOUS SYSTEM [None]
  - PARTIAL SEIZURES [None]
